FAERS Safety Report 17356270 (Version 1)
Quarter: 2020Q1

REPORT INFORMATION
  Report Type: Spontaneous
  Country: DZ (occurrence: DZ)
  Receive Date: 20200131
  Receipt Date: 20200131
  Transmission Date: 20200409
  Serious: No
  Sender: FDA-Public Use
  Company Number: DZ-TOLMAR, INC.-19DZ001204

PATIENT
  Age: 5 Decade
  Sex: Male

DRUGS (1)
  1. ELIGARD [Suspect]
     Active Substance: LEUPROLIDE ACETATE
     Indication: HORMONE-DEPENDENT PROSTATE CANCER
     Dosage: 22.5 MG
     Route: 065

REACTIONS (3)
  - Wrong technique in product usage process [Unknown]
  - Needle issue [Unknown]
  - Product administration error [Unknown]
